FAERS Safety Report 4734629-8 (Version None)
Quarter: 2005Q3

REPORT INFORMATION
  Report Type: 
  Country: None (occurrence: None)
  Receive Date: 20050721
  Receipt Date: 20050420
  Transmission Date: 20060218
  Serious: No
  Sender: FDA-Public Use
  Company Number: 2005SP000275

PATIENT
  Age: 71 Year
  Sex: Male
  Weight: 73.9363 kg

DRUGS (1)
  1. LUNESTA [Suspect]
     Indication: INSOMNIA
     Dosage: 1 MG;HS;ORAL
     Route: 048
     Dates: start: 20050407, end: 20050408

REACTIONS (6)
  - DRUG INEFFECTIVE [None]
  - EMOTIONAL DISORDER [None]
  - FEELING ABNORMAL [None]
  - LIBIDO DECREASED [None]
  - PERSONALITY CHANGE [None]
  - SLEEP DISORDER [None]
